FAERS Safety Report 4646574-7 (Version None)
Quarter: 2005Q2

REPORT INFORMATION
  Report Type: 
  Country: None (occurrence: None)
  Receive Date: 20050427
  Receipt Date: 20041210
  Transmission Date: 20051028
  Serious: No
  Sender: FDA-Public Use
  Company Number: US-GLAXOSMITHKLINE-A0537538A

PATIENT
  Sex: Male

DRUGS (1)
  1. FLOVENT [Suspect]
     Indication: DRUG USE FOR UNKNOWN INDICATION
     Dosage: 220MCG TWICE PER DAY
     Route: 055

REACTIONS (3)
  - HEADACHE [None]
  - HYPERSENSITIVITY [None]
  - MIGRAINE [None]
